FAERS Safety Report 5354615-7 (Version None)
Quarter: 2007Q2

REPORT INFORMATION
  Report Type: 
  Country: None (occurrence: None)
  Receive Date: 20070611
  Receipt Date: 20070525
  Transmission Date: 20071010
  Serious: Yes (Other)
  Sender: FDA-Public Use
  Company Number: GXKR2007TW04606

PATIENT
  Age: 39 Year
  Sex: Female

DRUGS (7)
  1. TRAMADOL HCL [Suspect]
     Indication: ABDOMINAL PAIN
     Dosage: 150 MG DAILY, INTRAVENOUS
     Route: 042
     Dates: start: 20050101, end: 20050101
  2. MEPERIDINE HYDROCHLORIDE [Suspect]
     Indication: ABDOMINAL PAIN
     Dosage: 25 MG, DAILY
     Dates: start: 20050101, end: 20050101
  3. PANTOPRAZOLE SODIUM [Concomitant]
  4. PREDNISOLONE [Concomitant]
  5. AMOXICILLIN [Concomitant]
  6. CLARITHYROMYCIN (CLARITHROMYCIN) [Concomitant]
  7. LAMIVUDINE [Concomitant]

REACTIONS (6)
  - CATATONIA [None]
  - DELIRIUM [None]
  - DEREALISATION [None]
  - DRUG INTERACTION [None]
  - IRRITABILITY [None]
  - RESTLESSNESS [None]
